FAERS Safety Report 9451238 (Version 1)
Quarter: 2013Q3

REPORT INFORMATION
  Report Type: Spontaneous
  Country: US (occurrence: US)
  Receive Date: 20130809
  Receipt Date: 20130809
  Transmission Date: 20140515
  Serious: Yes (Other)
  Sender: FDA-Public Use
  Company Number: US-TEVA-424339USA

PATIENT
  Sex: Male
  Weight: 237.9 kg

DRUGS (23)
  1. QVAR [Suspect]
     Indication: ASTHMA
  2. QVAR [Suspect]
     Indication: CHRONIC OBSTRUCTIVE PULMONARY DISEASE
     Dates: start: 2010
  3. CALAN [Concomitant]
     Indication: HYPERTENSION
  4. DIGOXIN [Concomitant]
  5. DULERA [Concomitant]
     Indication: ASTHMA
  6. EPIPEN [Concomitant]
     Indication: HYPERSENSITIVITY
  7. FLONASE [Concomitant]
     Indication: HYPERSENSITIVITY
  8. CLOTRIMAZOLE [Concomitant]
  9. FUROSEMIDE [Concomitant]
  10. KLOR [Concomitant]
     Indication: SUPPLEMENTATION THERAPY
  11. LISINOPRIL [Concomitant]
  12. METOPROLOL [Concomitant]
  13. PANTOPRAZOLE [Concomitant]
  14. PATANOL [Concomitant]
  15. PROVENTIL [Concomitant]
  16. REQUIP [Concomitant]
  17. SINGULAR [Concomitant]
  18. FLOMAX [Concomitant]
  19. WARFARIN [Concomitant]
  20. ZOLPIDEM [Concomitant]
  21. NUVIGIL [Concomitant]
  22. NEXIUM [Concomitant]
  23. SPIRIVA [Concomitant]

REACTIONS (3)
  - Cholecystectomy [Unknown]
  - Gallbladder disorder [Unknown]
  - Dyspnoea [Unknown]
